FAERS Safety Report 13939327 (Version 6)
Quarter: 2017Q4

REPORT INFORMATION
  Report Type: Report from Study
  Country: JP (occurrence: JP)
  Receive Date: 20170906
  Receipt Date: 20171127
  Transmission Date: 20180320
  Serious: Yes (Hospitalization)
  Sender: FDA-Public Use
  Company Number: JP-ROCHE-1982627

PATIENT
  Age: 65 Year
  Sex: Female
  Weight: 54.8 kg

DRUGS (10)
  1. LANSOPRAZOLE. [Concomitant]
     Active Substance: LANSOPRAZOLE
     Route: 048
     Dates: start: 20170822
  2. MAGNESIUM OXIDE. [Concomitant]
     Active Substance: MAGNESIUM OXIDE
     Indication: CONSTIPATION
     Route: 045
     Dates: start: 20170816, end: 20170821
  3. ATEZOLIZUMAB. [Suspect]
     Active Substance: ATEZOLIZUMAB
     Indication: TRANSITIONAL CELL CARCINOMA
     Dosage: THIS WAS MOST RECENT DOSE PRIOR TO EVENT
     Route: 042
     Dates: start: 20170808
  4. TAZOPIPE [Concomitant]
     Active Substance: PIPERACILLIN SODIUM\TAZOBACTAM SODIUM
     Dosage: COMBINATION FOR I.V. INJECTION 4.5
     Route: 042
     Dates: start: 20170822, end: 20170822
  5. TAZOPIPE [Concomitant]
     Active Substance: PIPERACILLIN SODIUM\TAZOBACTAM SODIUM
     Dosage: COMBINATION FOR I.V. INJECTION 4.5
     Route: 042
     Dates: start: 20170823, end: 20170823
  6. ISODINE [Concomitant]
     Active Substance: POVIDONE-IODINE
     Indication: OROPHARYNGEAL PAIN
     Dosage: SOLUTION 7%
     Route: 061
     Dates: start: 20170824, end: 20170830
  7. HYALURONATE NA [Concomitant]
     Active Substance: HYALURONATE SODIUM
     Route: 047
     Dates: start: 2015
  8. MAGNESIUM OXIDE. [Concomitant]
     Active Substance: MAGNESIUM OXIDE
     Indication: CONSTIPATION
     Route: 048
     Dates: start: 20170822
  9. TAZOPIPE [Concomitant]
     Active Substance: PIPERACILLIN SODIUM\TAZOBACTAM SODIUM
     Indication: INFECTION PROPHYLAXIS
     Dosage: COMBINATION FOR I.V. INJECTION 4.5
     Route: 042
     Dates: start: 20170821, end: 20170821
  10. VEEN-F [Concomitant]
     Active Substance: CALCIUM CHLORIDE\MAGNESIUM CHLORIDE\POTASSIUM CHLORIDE\SODIUM ACETATE\SODIUM CHLORIDE
     Route: 042
     Dates: start: 20170821, end: 20170827

REACTIONS (2)
  - Hepatic function abnormal [Recovered/Resolved]
  - Pyrexia [Recovered/Resolved]

NARRATIVE: CASE EVENT DATE: 20170817
